FAERS Safety Report 6818151-0 (Version None)
Quarter: 2010Q3

REPORT INFORMATION
  Report Type: 
  Country: None (occurrence: None)
  Receive Date: 20100706
  Receipt Date: 20081230
  Transmission Date: 20110219
  Serious: Yes (Other)
  Sender: FDA-Public Use
  Company Number: US-PFIZER INC-2008094651

PATIENT
  Sex: Female
  Weight: 82 kg

DRUGS (14)
  1. AROMASIN [Suspect]
     Indication: BREAST CANCER
     Dosage: UNK
     Route: 048
     Dates: start: 20080618, end: 20081106
  2. GLUCOPHAGE [Concomitant]
     Dosage: UNK
  3. ATENOLOL [Concomitant]
     Dosage: UNK
  4. ACCUPRIL [Concomitant]
     Dosage: UNK
  5. DETROL LA [Concomitant]
     Dosage: UNK
  6. SYNTHROID [Concomitant]
     Dosage: UNK
  7. WELLBUTRIN [Concomitant]
     Dosage: UNK
  8. LEXAPRO [Concomitant]
     Dosage: UNK
  9. FOLTX [Concomitant]
     Dosage: UNK
  10. ASPIRIN [Concomitant]
     Dosage: UNK
  11. NEURONTIN [Concomitant]
     Dosage: UNK
  12. VITAMIN D [Concomitant]
     Dosage: UNK
  13. CALCIUM CARBONATE [Concomitant]
     Dosage: UNK
  14. VITAMIN B6 [Concomitant]
     Dosage: UNK

REACTIONS (3)
  - BONE PAIN [None]
  - CARPAL TUNNEL SYNDROME [None]
  - HYPOAESTHESIA [None]
